FAERS Safety Report 12819719 (Version 1)
Quarter: 2016Q4

REPORT INFORMATION
  Report Type: Spontaneous
  Country: US (occurrence: US)
  Receive Date: 20161006
  Receipt Date: 20161006
  Transmission Date: 20170207
  Serious: Yes (Other)
  Sender: FDA-Public Use
  Company Number: None

PATIENT
  Age: 22 Year
  Sex: Female
  Weight: 128.25 kg

DRUGS (2)
  1. EMERGEN-C VITAMINS [Concomitant]
  2. MEDROXYPROGESTE- RONE [Suspect]
     Active Substance: MEDROXYPROGESTERONE
     Indication: HAEMORRHAGE
     Dosage: ?          QUANTITY:1 CAPSULE(S);?
     Route: 048
     Dates: start: 20161005

REACTIONS (2)
  - Abdominal pain upper [None]
  - Constipation [None]

NARRATIVE: CASE EVENT DATE: 20161005
